FAERS Safety Report 6741537-X (Version None)
Quarter: 2010Q2

REPORT INFORMATION
  Report Type: 
  Country: None (occurrence: None)
  Receive Date: 20100526
  Receipt Date: 20100515
  Transmission Date: 20101027
  Serious: Yes (Hospitalization)
  Sender: FDA-Public Use
  Company Number: TW-ABBOTT-10P-153-0645186-00

PATIENT
  Age: 26 Year
  Sex: Female

DRUGS (5)
  1. BIPERIDEN HYDROCHLORIDE TAB [Suspect]
     Indication: DRUG USE FOR UNKNOWN INDICATION
  2. LORAZEPAM [Suspect]
     Indication: DRUG USE FOR UNKNOWN INDICATION
  3. QUETIAPINE [Suspect]
     Indication: PSYCHOTIC DISORDER
  4. ARIPIPRAZOLE [Suspect]
     Indication: PSYCHOTIC DISORDER
  5. CLOZAPINE [Suspect]
     Indication: PSYCHOTIC DISORDER

REACTIONS (1)
  - MYASTHENIA GRAVIS [None]
